FAERS Safety Report 13587022 (Version 1)
Quarter: 2017Q2

REPORT INFORMATION
  Report Type: Not Available
  Country: HU (occurrence: HU)
  Receive Date: 20170526
  Receipt Date: 20170526
  Transmission Date: 20170830
  Serious: Yes (Life-Threatening)
  Sender: FDA-Public Use
  Company Number: HU-ANIPHARMA-2017-HU-000001

PATIENT
  Age: 27 Year
  Sex: Male

DRUGS (1)
  1. VALPROIC ACID (NON-SPECIFIC) [Suspect]
     Active Substance: VALPROIC ACID
     Dosage: 135G
     Route: 048

REACTIONS (12)
  - Atrial fibrillation [Recovered/Resolved]
  - Intentional overdose [Unknown]
  - Areflexia [Recovered/Resolved]
  - Leukopenia [Unknown]
  - Coma [Recovered/Resolved]
  - Toxic encephalopathy [Recovered/Resolved]
  - Shock [Unknown]
  - Hyperammonaemia [Recovered/Resolved]
  - Left ventricular dysfunction [Unknown]
  - Thrombocytopenia [Unknown]
  - Hypernatraemia [Recovered/Resolved]
  - Sepsis [Unknown]
